FAERS Safety Report 9357680 (Version 2)
Quarter: 2013Q4

REPORT INFORMATION
  Report Type: Spontaneous
  Country: US (occurrence: US)
  Receive Date: 20130620
  Receipt Date: 20131024
  Transmission Date: 20140711
  Serious: Yes (Other)
  Sender: FDA-Public Use
  Company Number: US-PFIZER INC-2013184053

PATIENT
  Age: 77 Year
  Sex: Female
  Weight: 65.76 kg

DRUGS (6)
  1. NEURONTIN [Suspect]
     Indication: NEURALGIA
     Dosage: 300 MG, 3X/DAY
     Route: 048
     Dates: start: 201205
  2. NEURONTIN [Suspect]
     Indication: SCAR
  3. LEVOTHYROXINE [Concomitant]
     Dosage: 50 UG, UNK
  4. METOPROLOL [Concomitant]
     Indication: HYPERTENSION
     Dosage: 25 MG, 2X/DAY
  5. LOSARTAN [Concomitant]
     Indication: HYPERTENSION
     Dosage: 100 MG, UNK
  6. LORAZEPAM [Concomitant]
     Dosage: 1 MG, UNK

REACTIONS (7)
  - Off label use [Unknown]
  - Thyroid function test abnormal [Unknown]
  - Renal function test abnormal [Unknown]
  - Depression [Unknown]
  - Dyskinesia [Unknown]
  - Weight increased [Unknown]
  - Asthenia [Unknown]
